FAERS Safety Report 25513152 (Version 1)
Quarter: 2025Q3

REPORT INFORMATION
  Report Type: Spontaneous
  Country: US (occurrence: US)
  Receive Date: 20250703
  Receipt Date: 20250703
  Transmission Date: 20251021
  Serious: No
  Sender: RADIUS PHARM
  Company Number: US-RADIUS HEALTH INC.-2024US005390

PATIENT
  Sex: Female

DRUGS (1)
  1. TYMLOS [Suspect]
     Active Substance: ABALOPARATIDE
     Indication: Product used for unknown indication
     Route: 058

REACTIONS (10)
  - Dry mouth [Unknown]
  - Paraesthesia [Unknown]
  - Ill-defined disorder [Unknown]
  - Headache [Unknown]
  - Muscular weakness [Unknown]
  - Ataxia [Unknown]
  - Gastrooesophageal reflux disease [Unknown]
  - Nausea [Unknown]
  - Abdominal pain lower [Unknown]
  - Constipation [Unknown]
